FAERS Safety Report 4263072-3 (Version None)
Quarter: 2004Q1

REPORT INFORMATION
  Report Type: 
  Country: None (occurrence: None)
  Receive Date: 20040105
  Receipt Date: 20031216
  Transmission Date: 20041129
  Serious: Yes (Death, Other)
  Sender: FDA-Public Use
  Company Number: PHBS2003JP14163

PATIENT
  Age: 86 Year
  Sex: Male
  Weight: 45 kg

DRUGS (5)
  1. LAMISIL [Suspect]
     Indication: NAIL TINEA
     Dosage: 125 MG/D
     Route: 048
     Dates: start: 20031202, end: 20031213
  2. DIOVAN [Concomitant]
     Indication: HYPERTENSION
     Dosage: 40 MG/D
     Route: 048
     Dates: start: 20030513, end: 20031213
  3. DICHLOTRIDE [Concomitant]
     Indication: HYPERTENSION
     Dosage: 25 MG/D
     Route: 048
     Dates: start: 20030529, end: 20031213
  4. MAGNESIUM OXIDE [Concomitant]
     Indication: GASTRIC CANCER
     Dosage: 1 G/D
     Route: 048
     Dates: start: 20030920, end: 20031212
  5. LAC B [Concomitant]
     Indication: GASTRIC CANCER
     Dosage: 1.5 G/D
     Route: 048
     Dates: start: 20030920, end: 20031212

REACTIONS (16)
  - ASTHENIA [None]
  - BLOOD CREATININE INCREASED [None]
  - BLOOD GLUCOSE INCREASED [None]
  - BLOOD PRESSURE IMMEASURABLE [None]
  - CARDIAC ARREST [None]
  - CARDIAC FAILURE ACUTE [None]
  - EATING DISORDER [None]
  - FEELING ABNORMAL [None]
  - HAEMATOCRIT DECREASED [None]
  - HAEMOGLOBIN DECREASED [None]
  - HEADACHE [None]
  - HYPOTHERMIA [None]
  - PULSE ABSENT [None]
  - RED BLOOD CELL COUNT DECREASED [None]
  - RESPIRATORY ARREST [None]
  - SUDDEN DEATH [None]
